FAERS Safety Report 4339772-3 (Version None)
Quarter: 2004Q2

REPORT INFORMATION
  Report Type: 
  Country: None (occurrence: None)
  Receive Date: 20040416
  Receipt Date: 20040223
  Transmission Date: 20050107
  Serious: Yes (Other)
  Sender: FDA-Public Use
  Company Number: PHFR2004GB01160

PATIENT
  Age: 49 Year
  Sex: Female

DRUGS (6)
  1. CLOZARIL [Suspect]
     Indication: SCHIZOPHRENIA
     Dosage: 50MG MANE 50 MG NOCTE
     Route: 048
     Dates: start: 20040221
  2. CLOZARIL [Suspect]
     Route: 048
  3. CHLORPROMAZINE [Concomitant]
     Indication: SCHIZOPHRENIA
     Dosage: 100 MG/DAY
     Route: 048
  4. THYROXINE [Concomitant]
     Indication: HYPOTHYROIDISM
     Dosage: 125UG/DAY
     Route: 048
  5. LANSOPRAZOLE [Concomitant]
     Route: 048
  6. ZOTEPINE [Concomitant]
     Indication: SCHIZOPHRENIA
     Dosage: 200 MG/DAY
     Route: 048
     Dates: start: 20030101, end: 20040219

REACTIONS (8)
  - BODY TEMPERATURE INCREASED [None]
  - FEELING ABNORMAL [None]
  - HYPERTENSION [None]
  - INFLUENZA LIKE ILLNESS [None]
  - OBESITY [None]
  - PHARYNGOLARYNGEAL PAIN [None]
  - TACHYCARDIA [None]
  - UPPER RESPIRATORY TRACT INFECTION [None]
